FAERS Safety Report 8317141-9 (Version None)
Quarter: 2012Q2

REPORT INFORMATION
  Report Type: 
  Country: None (occurrence: None)
  Receive Date: 20120425
  Receipt Date: 20120418
  Transmission Date: 20120825
  Serious: Yes (Hospitalization, Other)
  Sender: FDA-Public Use
  Company Number: US-ZYDUS-000403

PATIENT
  Age: 29 Year
  Sex: Female

DRUGS (2)
  1. PREDNISONE TAB [Suspect]
     Dosage: 15.00-MG-2.00 TIMES / PER-1.0DAYS
  2. HYDROXYCHLOROQUINE SULFATE [Suspect]
     Dosage: 200.00-MG-2.00 / TIMES PER-1.0DAYS

REACTIONS (2)
  - PERIPHERAL SENSORY NEUROPATHY [None]
  - DYSPNOEA [None]
